FAERS Safety Report 7096676-3 (Version None)
Quarter: 2010Q4

REPORT INFORMATION
  Report Type: 
  Country: None (occurrence: None)
  Receive Date: 20101111
  Receipt Date: 20101101
  Transmission Date: 20110411
  Serious: Yes (Other)
  Sender: FDA-Public Use
  Company Number: CZ-JNJFOC-20101002629

PATIENT
  Sex: Female
  Weight: 102 kg

DRUGS (6)
  1. INFLIXIMAB, RECOMBINANT [Suspect]
     Indication: RHEUMATOID ARTHRITIS
     Route: 042
  2. INFLIXIMAB, RECOMBINANT [Suspect]
     Route: 042
  3. ARAVA [Concomitant]
     Indication: RHEUMATOID ARTHRITIS
  4. ZALDIAR [Concomitant]
     Indication: PAIN
  5. HELICID [Concomitant]
  6. MEDROL [Concomitant]

REACTIONS (6)
  - CHEST PAIN [None]
  - HYPERSENSITIVITY [None]
  - HYPOTENSION [None]
  - INFUSION RELATED REACTION [None]
  - THROAT IRRITATION [None]
  - VISION BLURRED [None]
